FAERS Safety Report 7685442-3 (Version None)
Quarter: 2011Q3

REPORT INFORMATION
  Report Type: 
  Country: None (occurrence: None)
  Receive Date: 20110816
  Receipt Date: 20110805
  Transmission Date: 20111222
  Serious: Yes (Other)
  Sender: FDA-Public Use
  Company Number: US-JNJFOC-20110806007

PATIENT
  Age: 30 Year
  Sex: Male

DRUGS (3)
  1. FLEXERIL [Suspect]
     Indication: PRODUCT USED FOR UNKNOWN INDICATION
     Route: 048
  2. NUCYNTA [Suspect]
     Indication: INTERVERTEBRAL DISC PROTRUSION
     Dosage: TWICE A DAY AS NEEDED
     Route: 048
     Dates: start: 20090101
  3. ADVIL LIQUI-GELS [Concomitant]
     Indication: PAIN
     Route: 048

REACTIONS (1)
  - PLATELET COUNT DECREASED [None]
